FAERS Safety Report 18222406 (Version 1)
Quarter: 2020Q3

REPORT INFORMATION
  Report Type: Spontaneous
  Country: CA (occurrence: CA)
  Receive Date: 20200902
  Receipt Date: 20200902
  Transmission Date: 20201103
  Serious: Yes (Hospitalization)
  Sender: FDA-Public Use
  Company Number: CA-ASTRAZENECA-2020SF09685

PATIENT
  Age: 82 Year
  Sex: Female

DRUGS (14)
  1. CALCIUM CARBONATE CO [Concomitant]
  2. MYRBETRIQ [Concomitant]
     Active Substance: MIRABEGRON
  3. AMLODIPINE [Concomitant]
     Active Substance: AMLODIPINE BESYLATE
  4. ASA [Concomitant]
     Active Substance: ASPIRIN
  5. CLOZARIL [Suspect]
     Active Substance: CLOZAPINE
     Indication: PSYCHOTIC DISORDER
     Route: 065
  6. CENTRUM FORTE [Concomitant]
  7. PERINDOPRIL [Concomitant]
     Active Substance: PERINDOPRIL
  8. VITAMIN D [Concomitant]
     Active Substance: VITAMIN D NOS
  9. LEVOTHYROXINE. [Concomitant]
     Active Substance: LEVOTHYROXINE
  10. QUETIAPINE. [Suspect]
     Active Substance: QUETIAPINE
     Route: 048
  11. CLOZARIL [Suspect]
     Active Substance: CLOZAPINE
     Indication: PSYCHOTIC DISORDER
     Route: 048
  12. CLOZARIL [Suspect]
     Active Substance: CLOZAPINE
     Indication: COGNITIVE DISORDER
     Route: 065
  13. CLOZARIL [Suspect]
     Active Substance: CLOZAPINE
     Indication: COGNITIVE DISORDER
     Route: 048
  14. QUETIAPINE. [Concomitant]
     Active Substance: QUETIAPINE

REACTIONS (5)
  - White blood cell count decreased [Not Recovered/Not Resolved]
  - Platelet count decreased [Not Recovered/Not Resolved]
  - Pancytopenia [Not Recovered/Not Resolved]
  - Haemoglobin decreased [Not Recovered/Not Resolved]
  - Neutrophil count decreased [Not Recovered/Not Resolved]
